FAERS Safety Report 5709995-7 (Version None)
Quarter: 2008Q2

REPORT INFORMATION
  Report Type: 
  Country: None (occurrence: None)
  Receive Date: 20080418
  Receipt Date: 20070601
  Transmission Date: 20081010
  Serious: No
  Sender: FDA-Public Use
  Company Number: US-ASTRAZENECA-2007UW13354

PATIENT
  Sex: Female

DRUGS (2)
  1. TOPROL-XL [Suspect]
     Indication: ARRHYTHMIA
     Route: 048
  2. TOPROL-XL [Suspect]
     Indication: BLOOD PRESSURE
     Route: 048

REACTIONS (1)
  - JOINT SWELLING [None]
